FAERS Safety Report 5717315-7 (Version None)
Quarter: 2008Q2

REPORT INFORMATION
  Report Type: 
  Country: None (occurrence: None)
  Receive Date: 20080424
  Receipt Date: 20080424
  Transmission Date: 20081010
  Serious: Yes (Hospitalization)
  Sender: FDA-Public Use
  Company Number: None

PATIENT
  Age: 32 Year
  Sex: Male
  Weight: 65.9 kg

DRUGS (2)
  1. GEMTUZUMAB  OZOGAMICIN   5.0 MG   WYETH-AYERST [Suspect]
     Indication: ACUTE MYELOID LEUKAEMIA RECURRENT
     Dosage: 5.25 MG ONCE ON DAY 1,4,7  IV DRIP
     Route: 041
     Dates: start: 20080301, end: 20080307
  2. CLOFARABINE  20 MG  GENZYME [Suspect]
     Indication: ACUTE MYELOID LEUKAEMIA RECURRENT
     Dosage: 35 MG DAILY ON DAYS 1-5  IV DRIP
     Route: 041
     Dates: start: 20080301, end: 20080305

REACTIONS (5)
  - BACK PAIN [None]
  - HEART RATE INCREASED [None]
  - PAIN IN EXTREMITY [None]
  - PYREXIA [None]
  - RESPIRATORY RATE INCREASED [None]
